FAERS Safety Report 6164859-2 (Version None)
Quarter: 2009Q2

REPORT INFORMATION
  Report Type: 
  Country: None (occurrence: None)
  Receive Date: 20090423
  Receipt Date: 20090420
  Transmission Date: 20091009
  Serious: Yes (Other)
  Sender: FDA-Public Use
  Company Number: US-B.I. PHARMACEUTICALS,INC./RIDGEFIELD-2009-BP-04187BP

PATIENT
  Sex: Female

DRUGS (7)
  1. MICARDIS HCT [Suspect]
     Indication: HYPERTENSION
     Dates: start: 20090101
  2. CYCLOBENZAPRINE [Concomitant]
     Dosage: 20MG
  3. CLIMARA [Concomitant]
     Route: 061
  4. PROPRANOLOL [Concomitant]
     Dosage: 80MG
  5. BUSPAR [Concomitant]
  6. APAP W/ CODEINE [Concomitant]
  7. TYLENOL [Concomitant]
     Indication: HEADACHE

REACTIONS (4)
  - COMA [None]
  - HYPERTENSION [None]
  - MIGRAINE [None]
  - SYNCOPE [None]
